FAERS Safety Report 5620553-5 (Version None)
Quarter: 2008Q1

REPORT INFORMATION
  Report Type: 
  Country: None (occurrence: None)
  Receive Date: 20080208
  Receipt Date: 20080125
  Transmission Date: 20080703
  Serious: Yes (Life-Threatening)
  Sender: FDA-Public Use
  Company Number: FR-GENENTECH-251311

PATIENT
  Sex: Female
  Weight: 63 kg

DRUGS (2)
  1. AVASTIN [Suspect]
     Indication: BREAST CANCER
     Dosage: 630 MG, UNKNOWN
     Route: 042
     Dates: start: 20070817
  2. TAXOL [Suspect]
     Indication: DRUG USE FOR UNKNOWN INDICATION

REACTIONS (7)
  - BONE MARROW TOXICITY [None]
  - DISSEMINATED INTRAVASCULAR COAGULATION [None]
  - DRUG INTERACTION [None]
  - FEBRILE BONE MARROW APLASIA [None]
  - HEPATOCELLULAR INJURY [None]
  - MUCOSAL INFLAMMATION [None]
  - STAPHYLOCOCCAL INFECTION [None]
